FAERS Safety Report 16141637 (Version 1)
Quarter: 2019Q2

REPORT INFORMATION
  Report Type: Spontaneous
  Country: US (occurrence: US)
  Receive Date: 20190331
  Receipt Date: 20190331
  Transmission Date: 20190711
  Serious: No
  Sender: FDA-Public Use
  Company Number: None

PATIENT
  Age: 58 Year
  Sex: Female
  Weight: 59.4 kg

DRUGS (5)
  1. SUMATRIPTAN PRN [Concomitant]
  2. BUTALBITAL,CAFFEIN,ASPIRIN PRN [Concomitant]
  3. GALCANEZUMAB [Suspect]
     Active Substance: GALCANEZUMAB
     Indication: MIGRAINE
     Dosage: ?          OTHER FREQUENCY:MONTHLY;?
     Route: 030
     Dates: start: 20181127
  4. ONDANSETRON PRN [Concomitant]
  5. PHENERGAN PRN [Concomitant]

REACTIONS (9)
  - Myalgia [None]
  - Skin discolouration [None]
  - Mood swings [None]
  - Pain in extremity [None]
  - Hallucination, auditory [None]
  - Raynaud^s phenomenon [None]
  - Influenza like illness [None]
  - Insomnia [None]
  - Fatigue [None]

NARRATIVE: CASE EVENT DATE: 20190201
